FAERS Safety Report 15960570 (Version 1)
Quarter: 2019Q1

REPORT INFORMATION
  Report Type: Spontaneous
  Country: US (occurrence: US)
  Receive Date: 20190213
  Receipt Date: 20190213
  Transmission Date: 20190417
  Serious: Yes (Other)
  Sender: FDA-Public Use
  Company Number: None

PATIENT
  Age: 38 Year
  Sex: Female
  Weight: 74.25 kg

DRUGS (2)
  1. CYTOTEC [Suspect]
     Active Substance: MISOPROSTOL
     Indication: LABOUR INDUCTION
     Dates: start: 20150929, end: 20150929
  2. PRENATAL VITAMINS [Concomitant]
     Active Substance: VITAMINS

REACTIONS (3)
  - Uterine contractions abnormal [None]
  - Maternal drugs affecting foetus [None]
  - Complication of delivery [None]

NARRATIVE: CASE EVENT DATE: 20150929
